FAERS Safety Report 18063392 (Version 1)
Quarter: 2020Q3

REPORT INFORMATION
  Report Type: Spontaneous
  Country: US (occurrence: US)
  Receive Date: 20200724
  Receipt Date: 20200724
  Transmission Date: 20201103
  Serious: No
  Sender: FDA-Public Use
  Company Number: US-AMGEN-USASP2020118466

PATIENT
  Age: 50 Year
  Sex: Male

DRUGS (6)
  1. AMLODIPINE [Concomitant]
     Active Substance: AMLODIPINE BESYLATE
  2. LOSARTAN. [Concomitant]
     Active Substance: LOSARTAN
  3. SILDENAFIL. [Concomitant]
     Active Substance: SILDENAFIL
  4. CELEBREX [Concomitant]
     Active Substance: CELECOXIB
  5. METOPROLOL. [Concomitant]
     Active Substance: METOPROLOL
  6. OTEZLA [Suspect]
     Active Substance: APREMILAST
     Indication: PROSTATIC SPECIFIC ANTIGEN
     Dosage: 30 MILLIGRAM, BID
     Route: 048
     Dates: start: 20170714

REACTIONS (2)
  - Psoriasis [Not Recovered/Not Resolved]
  - Peripheral swelling [Not Recovered/Not Resolved]
